FAERS Safety Report 4791478-2 (Version None)
Quarter: 2005Q4

REPORT INFORMATION
  Report Type: 
  Country: None (occurrence: None)
  Receive Date: 20051007
  Receipt Date: 20040916
  Transmission Date: 20060501
  Serious: No
  Sender: FDA-Public Use
  Company Number: US-BRISTOL-MYERS SQUIBB COMPANY-12705232

PATIENT
  Age: 66 Year
  Sex: Female

DRUGS (6)
  1. AVAPRO [Suspect]
     Indication: HYPERTENSION
     Route: 048
     Dates: start: 20040813, end: 20040913
  2. POTASSIUM [Concomitant]
  3. TYLENOL W/ CODEINE [Concomitant]
  4. PREVACID [Concomitant]
  5. XALATAN [Concomitant]
  6. ALTACE [Concomitant]

REACTIONS (1)
  - XANTHOPSIA [None]
